FAERS Safety Report 14423467 (Version 1)
Quarter: 2018Q1

REPORT INFORMATION
  Report Type: Spontaneous
  Country: US (occurrence: US)
  Receive Date: 20180122
  Receipt Date: 20180122
  Transmission Date: 20180509
  Serious: Yes (Death, Disabling)
  Sender: FDA-Public Use
  Company Number: None

PATIENT
  Age: 32 Year
  Sex: Male
  Weight: 136.08 kg

DRUGS (1)
  1. ATOMOXETINE 80MG RISING PHARMACEUTICALS [Suspect]
     Active Substance: ATOMOXETINE
     Indication: ATTENTION DEFICIT/HYPERACTIVITY DISORDER
     Route: 048
     Dates: start: 20171127, end: 20180108

REACTIONS (4)
  - Mental impairment [None]
  - Loss of personal independence in daily activities [None]
  - Disturbance in attention [None]
  - Aphasia [None]

NARRATIVE: CASE EVENT DATE: 20180104
